FAERS Safety Report 9732866 (Version 1)
Quarter: 2013Q4

REPORT INFORMATION
  Report Type: Spontaneous
  Country: US (occurrence: US)
  Receive Date: 20131204
  Receipt Date: 20131204
  Transmission Date: 20140711
  Serious: No
  Sender: FDA-Public Use
  Company Number: US-GILEAD-2009-0021552

PATIENT
  Age: 61 Year
  Sex: Female

DRUGS (5)
  1. LETAIRIS [Suspect]
     Indication: PULMONARY ARTERIAL HYPERTENSION
     Route: 048
     Dates: start: 20090415, end: 20090420
  2. CARVEDILOL [Concomitant]
  3. LISINOPRIL [Concomitant]
  4. GLIMEPIRIDE [Concomitant]
  5. JANUMET [Concomitant]

REACTIONS (3)
  - Pyrexia [Unknown]
  - Pruritus [Unknown]
  - Joint swelling [Unknown]
